FAERS Safety Report 23774348 (Version 4)
Quarter: 2025Q1

REPORT INFORMATION
  Report Type: Spontaneous
  Country: JP (occurrence: JP)
  Receive Date: 20240423
  Receipt Date: 20250319
  Transmission Date: 20250408
  Serious: Yes (Hospitalization, Other)
  Sender: ALEXION PHARMACEUTICALS
  Company Number: 2024A089442

PATIENT
  Age: 64 Year
  Weight: 65 kg

DRUGS (26)
  1. LYNPARZA [Suspect]
     Active Substance: OLAPARIB
     Indication: Ovarian cancer recurrent
     Dosage: DOSE UNKNOWN
  2. PACLITAXEL [Suspect]
     Active Substance: PACLITAXEL
  3. PACLITAXEL [Suspect]
     Active Substance: PACLITAXEL
     Indication: Ovarian cancer recurrent
     Route: 065
  4. PACLITAXEL [Suspect]
     Active Substance: PACLITAXEL
     Indication: Ovarian cancer
     Route: 065
  5. PACLITAXEL [Suspect]
     Active Substance: PACLITAXEL
     Route: 065
  6. CARBOPLATIN [Suspect]
     Active Substance: CARBOPLATIN
     Indication: Ovarian cancer
     Route: 065
  7. CARBOPLATIN [Suspect]
     Active Substance: CARBOPLATIN
     Indication: Ovarian cancer recurrent
     Route: 065
  8. CARBOPLATIN [Suspect]
     Active Substance: CARBOPLATIN
     Route: 065
  9. NEDAPLATIN [Suspect]
     Active Substance: NEDAPLATIN
     Indication: Ovarian cancer recurrent
     Route: 065
  10. NEDAPLATIN [Suspect]
     Active Substance: NEDAPLATIN
     Route: 065
  11. METOCLOPRAMIDE [Concomitant]
     Active Substance: METOCLOPRAMIDE
  12. METOCLOPRAMIDE [Concomitant]
     Active Substance: METOCLOPRAMIDE
     Indication: Ovarian cancer recurrent
  13. Waplon [Concomitant]
  14. Waplon [Concomitant]
     Indication: Ovarian cancer recurrent
  15. LOXOPROFEN SODIUM [Concomitant]
     Active Substance: LOXOPROFEN SODIUM
  16. LOXOPROFEN SODIUM [Concomitant]
     Active Substance: LOXOPROFEN SODIUM
     Indication: Ovarian cancer recurrent
  17. REBAMIPIDE [Concomitant]
     Active Substance: REBAMIPIDE
  18. REBAMIPIDE [Concomitant]
     Active Substance: REBAMIPIDE
     Indication: Ovarian cancer recurrent
  19. Rinderon [Concomitant]
  20. CLARITIN [Concomitant]
     Active Substance: LORATADINE
     Dosage: 10 MILLIGRAM, QD
  21. TRANEXAMIC ACID [Concomitant]
     Active Substance: TRANEXAMIC ACID
     Indication: Seasonal allergy
     Dosage: 250 MILLIGRAM, TID
  22. KETOPROFEN [Concomitant]
     Active Substance: KETOPROFEN
     Indication: Ovarian cancer recurrent
  23. CLARITIN REDITABS [Concomitant]
     Active Substance: LORATADINE
     Indication: Seasonal allergy
  24. CARBOPLATIN [Suspect]
     Active Substance: CARBOPLATIN
  25. RINDERON VG [Concomitant]
     Active Substance: BETAMETHASONE VALERATE\GENTAMICIN SULFATE
     Indication: Ovarian cancer recurrent
  26. KETOPROFEN [Concomitant]
     Active Substance: KETOPROFEN
     Indication: Ovarian cancer recurrent

REACTIONS (2)
  - Myelodysplastic syndrome [Not Recovered/Not Resolved]
  - Leukaemia [Not Recovered/Not Resolved]
